FAERS Safety Report 7240173-9 (Version None)
Quarter: 2011Q1

REPORT INFORMATION
  Report Type: 
  Country: None (occurrence: None)
  Receive Date: 20110113
  Receipt Date: 20110104
  Transmission Date: 20110831
  Serious: Yes (Hospitalization, Other)
  Sender: FDA-Public Use
  Company Number: 2010US004831

PATIENT
  Age: 46 Year
  Sex: Male

DRUGS (7)
  1. SULFAMETHOXAZOLE W/TRIMETHOPRIM (SULFAMETHOXAZOLE, TROMETHOPRIM) [Concomitant]
  2. LABETALOL HCL [Concomitant]
  3. FAMOTIDINE [Concomitant]
  4. MINOXIDIL [Concomitant]
  5. PROGRAF [Suspect]
     Indication: RENAL TRANSPLANT
     Dosage: 3 MG, BID, ORAL
     Route: 048
     Dates: end: 20100101
  6. CLONIDINE [Concomitant]
  7. PREDNISONE TAB [Concomitant]

REACTIONS (3)
  - ANAEMIA [None]
  - TREATMENT NONCOMPLIANCE [None]
  - KIDNEY TRANSPLANT REJECTION [None]
